FAERS Safety Report 11779525 (Version 2)
Quarter: 2016Q2

REPORT INFORMATION
  Report Type: Spontaneous
  Country: US (occurrence: US)
  Receive Date: 20151125
  Receipt Date: 20160415
  Transmission Date: 20160815
  Serious: Yes (Other)
  Sender: FDA-Public Use
  Company Number: US-MDT-ADR-2015-02249

PATIENT
  Age: 43 Year
  Sex: Female

DRUGS (1)
  1. LIORESAL [Suspect]
     Active Substance: BACLOFEN
     Dosage: 388.6MCG/DAY
     Route: 037
     Dates: start: 20151109, end: 20151215

REACTIONS (2)
  - Muscle spasticity [Recovered/Resolved]
  - Therapeutic response decreased [Recovered/Resolved]

NARRATIVE: CASE EVENT DATE: 20151116
